FAERS Safety Report 6818428-9 (Version None)
Quarter: 2010Q3

REPORT INFORMATION
  Report Type: 
  Country: None (occurrence: None)
  Receive Date: 20100706
  Receipt Date: 20080208
  Transmission Date: 20110219
  Serious: No
  Sender: FDA-Public Use
  Company Number: US-PFIZER INC-2008010166

PATIENT
  Sex: Male
  Weight: 72.727 kg

DRUGS (3)
  1. ZITHROMAX [Suspect]
     Indication: RESPIRATORY TRACT INFECTION
     Dates: start: 20070601, end: 20071201
  2. LEVOXYL [Concomitant]
  3. TYLENOL [Concomitant]

REACTIONS (1)
  - DRUG INEFFECTIVE [None]
